FAERS Safety Report 13452842 (Version 3)
Quarter: 2018Q4

REPORT INFORMATION
  Report Type: Spontaneous
  Country: IN (occurrence: IN)
  Receive Date: 20170418
  Receipt Date: 20181123
  Transmission Date: 20190204
  Serious: Yes (Hospitalization, Other)
  Sender: FDA-Public Use
  Company Number: IN-PFIZER INC-2017159470

PATIENT
  Age: 62 Year
  Sex: Female

DRUGS (2)
  1. LETROZOLE. [Concomitant]
     Active Substance: LETROZOLE
     Dosage: UNK
  2. PALBACE [Suspect]
     Active Substance: PALBOCICLIB
     Indication: BREAST CANCER METASTATIC
     Dosage: 125 MG, 1X/DAY
     Route: 048
     Dates: start: 20161208, end: 2018

REACTIONS (14)
  - Fatigue [Unknown]
  - Gait inability [Unknown]
  - Insomnia [Unknown]
  - Abdominal distension [Unknown]
  - Dysphonia [Unknown]
  - Stress [Unknown]
  - Feeding disorder [Unknown]
  - Vomiting [Unknown]
  - Asthenia [Unknown]
  - Full blood count decreased [Unknown]
  - Alopecia [Unknown]
  - Dyspnoea [Unknown]
  - Headache [Unknown]
  - Pain of skin [Unknown]
